FAERS Safety Report 5124254-1 (Version None)
Quarter: 2006Q4

REPORT INFORMATION
  Report Type: 
  Country: None (occurrence: None)
  Receive Date: 20061010
  Receipt Date: 20050215
  Transmission Date: 20070319
  Serious: Yes (Death)
  Sender: FDA-Public Use
  Company Number: IT-ABBOTT-05P-083-0290770-00

PATIENT
  Sex: Male

DRUGS (4)
  1. RITONAVIR SOFT GELATIN CAPSULES [Suspect]
     Indication: HIV INFECTION
     Route: 048
     Dates: start: 20031113, end: 20040907
  2. AMPRENAVIR [Concomitant]
     Indication: HIV INFECTION
     Dates: start: 20031113, end: 20040907
  3. DIDANOSINE [Concomitant]
     Indication: RETROVIRAL INFECTION
  4. LAMIVUDINE [Concomitant]
     Indication: RETROVIRAL INFECTION

REACTIONS (1)
  - DEATH [None]
